FAERS Safety Report 10279634 (Version 3)
Quarter: 2014Q4

REPORT INFORMATION
  Report Type: Spontaneous
  Country: US (occurrence: US)
  Receive Date: 20140707
  Receipt Date: 20141031
  Transmission Date: 20150528
  Serious: Yes (Hospitalization, Other)
  Sender: FDA-Public Use
  Company Number: US-AMGEN INC.-USASP2014050168

PATIENT
  Age: 50 Year
  Sex: Female
  Weight: 145.13 kg

DRUGS (1)
  1. ENBREL [Suspect]
     Active Substance: ETANERCEPT
     Indication: RHEUMATOID ARTHRITIS
     Dosage: 50 MG, QWK
     Route: 058
     Dates: start: 20140516, end: 201410

REACTIONS (7)
  - Chills [Recovered/Resolved]
  - Infection [Recovered/Resolved]
  - Pyrexia [Unknown]
  - Urinary tract infection [Unknown]
  - Cellulitis [Unknown]
  - Fatigue [Unknown]
  - Furuncle [Unknown]

NARRATIVE: CASE EVENT DATE: 201406
